FAERS Safety Report 11196222 (Version 1)
Quarter: 2015Q2

REPORT INFORMATION
  Report Type: Spontaneous
  Country: US (occurrence: None)
  Receive Date: 20150616
  Receipt Date: 20150616
  Transmission Date: 20150821
  Serious: Yes (Other)
  Sender: FDA-Public Use
  Company Number: None

PATIENT
  Age: 31 Year
  Sex: Male
  Weight: 66.68 kg

DRUGS (1)
  1. CELECOXIB 200MG [Suspect]
     Active Substance: CELECOXIB
     Indication: BACK PAIN
     Route: 048
     Dates: start: 20150201, end: 20150327

REACTIONS (1)
  - Alopecia [None]

NARRATIVE: CASE EVENT DATE: 20150301
